FAERS Safety Report 7759460-0 (Version None)
Quarter: 2011Q3

REPORT INFORMATION
  Report Type: 
  Country: None (occurrence: None)
  Receive Date: 20110919
  Receipt Date: 20110907
  Transmission Date: 20111222
  Serious: Yes (Hospitalization)
  Sender: FDA-Public Use
  Company Number: JP-ROCHE-801669

PATIENT
  Age: 44 Year
  Sex: Female

DRUGS (3)
  1. HERCEPTIN [Suspect]
     Indication: BREAST CANCER
     Route: 041
  2. CYCLOPHOSPHAMIDE [Concomitant]
     Route: 041
  3. DOXORUBICIN HCL [Suspect]
     Route: 041

REACTIONS (1)
  - ATRIOVENTRICULAR BLOCK COMPLETE [None]
